FAERS Safety Report 21438752 (Version 1)
Quarter: 2022Q4

REPORT INFORMATION
  Report Type: Spontaneous
  Country: ES (occurrence: None)
  Receive Date: 20221011
  Receipt Date: 20221011
  Transmission Date: 20230113
  Serious: Yes (Other)
  Sender: FDA-Public Use
  Company Number: None

PATIENT
  Age: 11 Year
  Sex: Female
  Weight: 36 kg

DRUGS (1)
  1. SAIZEN [Suspect]
     Active Substance: SOMATROPIN
     Indication: Product used for unknown indication
     Dosage: EVERY NIGHT BEFORE GOING TO BED WITH A 1.25 MG INJECTION
     Route: 058
     Dates: start: 20220719, end: 20220916

REACTIONS (1)
  - Migraine with aura [Recovered/Resolved]

NARRATIVE: CASE EVENT DATE: 20220916
